FAERS Safety Report 25220826 (Version 7)
Quarter: 2025Q2

REPORT INFORMATION
  Report Type: Report from Study
  Country: IL (occurrence: IL)
  Receive Date: 20250421
  Receipt Date: 20250530
  Transmission Date: 20250717
  Serious: Yes (Death, Hospitalization)
  Sender: ABBVIE
  Company Number: IL-ABBVIE-6220201

PATIENT
  Age: 73 Year
  Sex: Male

DRUGS (2)
  1. CARBIDOPA\LEVODOPA [Suspect]
     Active Substance: CARBIDOPA\LEVODOPA
     Indication: Parkinson^s disease
     Route: 050
  2. CARBIDOPA\LEVODOPA [Suspect]
     Active Substance: CARBIDOPA\LEVODOPA
     Route: 050
     Dates: start: 20211214

REACTIONS (18)
  - Pneumonia [Fatal]
  - On and off phenomenon [Unknown]
  - Constipation [Unknown]
  - Dyspnoea [Unknown]
  - Stoma site discharge [Unknown]
  - Feeding disorder [Unknown]
  - Abdominal rigidity [Unknown]
  - Abdominal pain [Unknown]
  - Tremor [Unknown]
  - Volvulus [Unknown]
  - Urinary retention [Unknown]
  - Aspiration [Unknown]
  - Stoma site erythema [Unknown]
  - Stoma site irritation [Unknown]
  - Somnolence [Unknown]
  - Decubitus ulcer [Unknown]
  - Device implantation error [Unknown]
  - Parkinson^s disease [Unknown]

NARRATIVE: CASE EVENT DATE: 20250101
